FAERS Safety Report 5297987-4 (Version None)
Quarter: 2007Q2

REPORT INFORMATION
  Report Type: 
  Country: None (occurrence: None)
  Receive Date: 20070416
  Receipt Date: 20070403
  Transmission Date: 20071010
  Serious: Yes (Hospitalization, Other)
  Sender: FDA-Public Use
  Company Number: PHEH2007US04123

PATIENT
  Age: 78 Year
  Sex: Male

DRUGS (6)
  1. ZELNORM [Suspect]
     Indication: IRRITABLE BOWEL SYNDROME
     Dosage: 6 MG, BID
     Dates: end: 20070402
  2. FLOMAX [Concomitant]
  3. WARFARIN SODIUM [Concomitant]
  4. PREVACID [Concomitant]
  5. STOOL SOFTENER [Concomitant]
  6. THEO [Concomitant]

REACTIONS (6)
  - ABDOMINAL PAIN UPPER [None]
  - DEPRESSED MOOD [None]
  - DIARRHOEA [None]
  - GASTROINTESTINAL TUBE INSERTION [None]
  - IRRITABLE BOWEL SYNDROME [None]
  - WEIGHT DECREASED [None]
